FAERS Safety Report 9600551 (Version 1)
Quarter: 2013Q4

REPORT INFORMATION
  Report Type: Spontaneous
  Country: US (occurrence: US)
  Receive Date: 20131004
  Receipt Date: 20131004
  Transmission Date: 20140711
  Serious: No
  Sender: FDA-Public Use
  Company Number: US-AMGEN-USASP2013035913

PATIENT
  Age: 84 Year
  Sex: Female
  Weight: 87.08 kg

DRUGS (4)
  1. ENBREL [Suspect]
     Indication: PRODUCT USED FOR UNKNOWN INDICATION
     Dosage: 50 MG, QWK
     Route: 058
  2. ZOCOR [Concomitant]
     Dosage: 5 MG, UNK
  3. DETROL [Concomitant]
     Dosage: 1 MG, UNK
  4. NEXIUM                             /01479302/ [Concomitant]
     Dosage: 40 MG, UNK

REACTIONS (5)
  - Pruritus [Unknown]
  - Weight decreased [Unknown]
  - Oral pain [Unknown]
  - Oral discomfort [Unknown]
  - Lip exfoliation [Unknown]
